FAERS Safety Report 23930225 (Version 1)
Quarter: 2024Q2

REPORT INFORMATION
  Report Type: Spontaneous
  Country: FR (occurrence: FR)
  Receive Date: 20240602
  Receipt Date: 20240602
  Transmission Date: 20240716
  Serious: Yes (Other)
  Sender: FDA-Public Use
  Company Number: FR-AFSSAPS-MA2024000607

PATIENT
  Age: 17 Year
  Sex: Male
  Weight: 60 kg

DRUGS (2)
  1. ISOTRETINOIN [Suspect]
     Active Substance: ISOTRETINOIN
     Indication: Acne
     Dosage: 30 MILLIGRAM, ONCE A DAY (30G FOR 3 MONTHS AND 60G FOR 4 MONTHS)
     Route: 048
     Dates: start: 20201109, end: 20210207
  2. ISOTRETINOIN [Suspect]
     Active Substance: ISOTRETINOIN
     Dosage: 60 MILLIGRAM, ONCE A DAY
     Route: 048
     Dates: start: 20210207, end: 20210607

REACTIONS (3)
  - Keratitis [Recovering/Resolving]
  - Chalazion [Recovering/Resolving]
  - Dry eye [Recovering/Resolving]

NARRATIVE: CASE EVENT DATE: 20210101
